FAERS Safety Report 5762147-7 (Version None)
Quarter: 2008Q2

REPORT INFORMATION
  Report Type: 
  Country: None (occurrence: None)
  Receive Date: 20080604
  Receipt Date: 20080519
  Transmission Date: 20081010
  Serious: Yes (Hospitalization)
  Sender: FDA-Public Use
  Company Number: 8032995

PATIENT
  Age: 76 Year
  Sex: Male

DRUGS (4)
  1. LEVETIRACETAM [Suspect]
     Indication: COMPLEX PARTIAL SEIZURES
     Dosage: 1000 MG 2/D
  2. LEVETIRACETAM [Suspect]
     Indication: COMPLEX PARTIAL SEIZURES
     Dosage: 500 MG 2/D
  3. AMLODIPINE [Concomitant]
  4. LORAZEPAM [Concomitant]

REACTIONS (6)
  - BLOOD OSMOLARITY DECREASED [None]
  - CONVULSION [None]
  - DRUG EFFECT DECREASED [None]
  - GRAND MAL CONVULSION [None]
  - HYPONATRAEMIA [None]
  - MEDICATION ERROR [None]
